FAERS Safety Report 8076639-1 (Version None)
Quarter: 2012Q1

REPORT INFORMATION
  Report Type: 
  Country: None (occurrence: None)
  Receive Date: 20120127
  Receipt Date: 20120125
  Transmission Date: 20120608
  Serious: Yes (Death)
  Sender: FDA-Public Use
  Company Number: PHHY2012GB006845

PATIENT
  Age: 85 Year

DRUGS (1)
  1. CARBOPLATIN [Suspect]
     Indication: SEMINOMA
     Route: 048

REACTIONS (2)
  - NAUSEA [None]
  - DEATH [None]
